FAERS Safety Report 9253399 (Version 2)
Quarter: 2013Q2

REPORT INFORMATION
  Report Type: Report from Study
  Country: US (occurrence: US)
  Receive Date: 20130425
  Receipt Date: 20130501
  Transmission Date: 20140414
  Serious: Yes (Other)
  Sender: FDA-Public Use
  Company Number: US-ROCHE-1217713

PATIENT
  Age: 51 Year
  Sex: Female

DRUGS (1)
  1. RITUXAN [Suspect]
     Indication: COLD TYPE HAEMOLYTIC ANAEMIA
     Route: 042
     Dates: start: 201211, end: 201212

REACTIONS (3)
  - Dizziness [Recovered/Resolved]
  - Vision blurred [Not Recovered/Not Resolved]
  - Tendonitis [Unknown]
